FAERS Safety Report 17350537 (Version 5)
Quarter: 2020Q2

REPORT INFORMATION
  Report Type: Report from Study
  Country: US (occurrence: US)
  Receive Date: 20200130
  Receipt Date: 20200623
  Transmission Date: 20200713
  Serious: Yes (Other)
  Sender: FDA-Public Use
  Company Number: US-CLOVIS ONCOLOGY-CLO-2020-000173

PATIENT
  Sex: Female

DRUGS (1)
  1. RUBRACA [Suspect]
     Active Substance: RUCAPARIB CAMSYLATE
     Indication: FALLOPIAN TUBE CANCER
     Dosage: 600 MG, BID
     Route: 048
     Dates: start: 20191210

REACTIONS (10)
  - Memory impairment [Not Recovered/Not Resolved]
  - Depression [Unknown]
  - Nausea [Unknown]
  - Surgery [Unknown]
  - Dry mouth [Unknown]
  - Abdominal pain [Unknown]
  - Anaemia [Recovered/Resolved]
  - Product dose omission [Unknown]
  - Oral pain [Unknown]
  - Fatigue [Not Recovered/Not Resolved]
